FAERS Safety Report 25045368 (Version 3)
Quarter: 2025Q2

REPORT INFORMATION
  Report Type: Spontaneous
  Country: US (occurrence: US)
  Receive Date: 20250306
  Receipt Date: 20250616
  Transmission Date: 20250717
  Serious: No
  Sender: BIOGEN
  Company Number: US-BIOGEN-2025BI01302891

PATIENT
  Sex: Female

DRUGS (1)
  1. VUMERITY [Suspect]
     Active Substance: DIROXIMEL FUMARATE
     Indication: Multiple sclerosis
     Route: 050
     Dates: start: 20210528

REACTIONS (5)
  - Tooth infection [Unknown]
  - Tooth fracture [Unknown]
  - Decreased gait velocity [Unknown]
  - Malaise [Unknown]
  - Fall [Recovered/Resolved]
